FAERS Safety Report 5919386-1 (Version None)
Quarter: 2008Q4

REPORT INFORMATION
  Report Type: 
  Country: None (occurrence: None)
  Receive Date: 20081015
  Receipt Date: 20081007
  Transmission Date: 20090506
  Serious: Yes (Hospitalization)
  Sender: FDA-Public Use
  Company Number: B0540538A

PATIENT
  Age: 78 Year
  Sex: Male

DRUGS (9)
  1. AUGMENTIN '125' [Suspect]
     Route: 048
     Dates: start: 20080911, end: 20080914
  2. PREVISCAN [Suspect]
     Route: 048
     Dates: end: 20080913
  3. SOLU-MEDROL [Concomitant]
     Route: 065
     Dates: start: 20080911
  4. LOXEN [Concomitant]
     Indication: DRUG USE FOR UNKNOWN INDICATION
  5. CORDARONE [Concomitant]
     Indication: DRUG USE FOR UNKNOWN INDICATION
     Route: 065
  6. LASIX [Concomitant]
     Indication: DRUG USE FOR UNKNOWN INDICATION
  7. TOPALGIC ( FRANCE ) [Concomitant]
     Indication: DRUG USE FOR UNKNOWN INDICATION
     Route: 065
  8. MYOLASTAN [Concomitant]
     Indication: DRUG USE FOR UNKNOWN INDICATION
     Route: 065
  9. MICARDIS [Concomitant]
     Indication: DRUG USE FOR UNKNOWN INDICATION
     Route: 065

REACTIONS (2)
  - INTERNATIONAL NORMALISED RATIO INCREASED [None]
  - PROTHROMBIN TIME RATIO DECREASED [None]
